FAERS Safety Report 11184386 (Version 2)
Quarter: 2015Q4

REPORT INFORMATION
  Report Type: Spontaneous
  Country: US (occurrence: US)
  Receive Date: 20150612
  Receipt Date: 20151123
  Transmission Date: 20160304
  Serious: Yes (Hospitalization)
  Sender: FDA-Public Use
  Company Number: US-MALLINCKRODT-T201502678

PATIENT
  Age: 55 Year
  Sex: Male
  Weight: 109 kg

DRUGS (11)
  1. FLEXERIL [Concomitant]
     Active Substance: CYCLOBENZAPRINE HYDROCHLORIDE
  2. FLOMAX [Concomitant]
     Active Substance: TAMSULOSIN HYDROCHLORIDE
  3. FENTANYL TRANSDERMAL SYSTEM [Suspect]
     Active Substance: FENTANYL
     Indication: PAIN
     Dosage: 75 MCG/HR,  EVERY 48 HRS
     Route: 062
     Dates: start: 201411
  4. AMBIEN [Concomitant]
     Active Substance: ZOLPIDEM TARTRATE
  5. FENTANYL TRANSDERMAL SYSTEM [Suspect]
     Active Substance: FENTANYL
     Indication: FIBROMYALGIA
     Dosage: 75 MCG/HR, EVERY 72 HOURS
     Route: 062
     Dates: start: 2014, end: 201505
  6. ELAVIL [Suspect]
     Active Substance: AMITRIPTYLINE HYDROCHLORIDE
     Indication: DEPRESSION
     Dosage: 50 MG
     Route: 065
  7. SOMA [Concomitant]
     Active Substance: CARISOPRODOL
     Dosage: 350 QID
  8. KLONOPIN [Concomitant]
     Active Substance: CLONAZEPAM
     Dosage: 1 MG, TID
  9. EFFEXOR [Suspect]
     Active Substance: VENLAFAXINE HYDROCHLORIDE
     Indication: DEPRESSION
     Dosage: 150 MG ER
     Route: 065
  10. AMITRIPTYLINE [Concomitant]
     Active Substance: AMITRIPTYLINE
  11. SUBSYS [Suspect]
     Active Substance: FENTANYL
     Indication: BREAKTHROUGH PAIN
     Dosage: UNK
     Route: 065

REACTIONS (14)
  - Flushing [Recovered/Resolved]
  - Drug effect decreased [Recovered/Resolved]
  - Drug ineffective [None]
  - Product adhesion issue [Recovered/Resolved]
  - Serotonin syndrome [Recovered/Resolved]
  - Hypertension [Recovered/Resolved]
  - Gastrooesophageal reflux disease [Recovered/Resolved]
  - Irritable bowel syndrome [Recovered/Resolved]
  - Headache [Recovered/Resolved]
  - Bowel movement irregularity [Recovered/Resolved]
  - Diarrhoea [Recovered/Resolved]
  - Pain [Recovered/Resolved]
  - Muscle spasms [Recovered/Resolved]
  - Abdominal pain upper [Recovered/Resolved]

NARRATIVE: CASE EVENT DATE: 201505
